FAERS Safety Report 7803381 (Version 4)
Quarter: 2013Q4

REPORT INFORMATION
  Report Type: Spontaneous
  Country: US (occurrence: US)
  Receive Date: 20110208
  Receipt Date: 20131202
  Transmission Date: 20140711
  Serious: Yes (Other)
  Sender: FDA-Public Use
  Company Number: US-BAYER-2011-011234

PATIENT
  Age: 22 Year
  Sex: Female
  Weight: 91 kg

DRUGS (6)
  1. YAZ [Suspect]
     Indication: ORAL CONTRACEPTION
     Dosage: UNK
     Route: 048
     Dates: start: 2005, end: 2009
  2. NAPROXEN [Concomitant]
  3. PROTONIX [Concomitant]
  4. IBUPROFEN [Concomitant]
     Dosage: 600 MG, EVERY SIX HOURS
  5. PREVACID [Concomitant]
     Dosage: 40 MG, QD
     Dates: start: 20090224, end: 20090305
  6. MULTIVITAMIN [Concomitant]
     Dosage: UNK
     Dates: start: 20090305

REACTIONS (4)
  - Cholecystitis chronic [None]
  - Pain [None]
  - Cholecystectomy [None]
  - Injury [None]
